FAERS Safety Report 17246414 (Version 2)
Quarter: 2020Q1

REPORT INFORMATION
  Report Type: Spontaneous
  Country: CN (occurrence: CN)
  Receive Date: 20200108
  Receipt Date: 20200113
  Transmission Date: 20200409
  Serious: Yes (Hospitalization)
  Sender: FDA-Public Use
  Company Number: CN-ASTRAZENECA-2019SF89371

PATIENT
  Sex: Female
  Weight: 55 kg

DRUGS (4)
  1. PIDOTIMOD [Concomitant]
     Active Substance: PIDOTIMOD
     Indication: DRUG THERAPY
     Dosage: 2 TIMES A DAY, 10ML ONCE, INSTRUCTION MANUAL RECOMMENDS 3 TIMES A DAY
     Route: 048
  2. ACETYLCYSTEINE. [Concomitant]
     Active Substance: ACETYLCYSTEINE
     Indication: BRONCHIAL DISORDER
     Dosage: 2 TIMES A DAY, 2 TIMES A CAPSULE
  3. IRESSA [Suspect]
     Active Substance: GEFITINIB
     Indication: LUNG NEOPLASM MALIGNANT
     Route: 048
  4. CEPHALOSPORIN [Concomitant]
     Active Substance: UNSPECIFIED INGREDIENT
     Indication: INFLAMMATION
     Dosage: 0.6 G PER DAY (3 TIMES A DAY, 2 CAPSULES ONE TIME)

REACTIONS (4)
  - Diarrhoea [Recovering/Resolving]
  - Abdominal pain [Recovering/Resolving]
  - Feeling abnormal [Recovering/Resolving]
  - Decreased appetite [Recovering/Resolving]
